FAERS Safety Report 17949741 (Version 1)
Quarter: 2020Q2

REPORT INFORMATION
  Report Type: Report from Study
  Country: US (occurrence: US)
  Receive Date: 20200625
  Receipt Date: 20200625
  Transmission Date: 20200714
  Serious: Yes (Hospitalization, Other)
  Sender: FDA-Public Use
  Company Number: US-ACTELION-A-NJ2019-186084

PATIENT
  Age: 62 Year
  Sex: Female

DRUGS (13)
  1. LISINOPRIL. [Concomitant]
     Active Substance: LISINOPRIL
  2. PREDNISONE. [Concomitant]
     Active Substance: PREDNISONE
  3. DONEPEZIL. [Concomitant]
     Active Substance: DONEPEZIL
  4. MELOXICAM. [Concomitant]
     Active Substance: MELOXICAM
  5. DUONEB [Concomitant]
     Active Substance: ALBUTEROL SULFATE\IPRATROPIUM BROMIDE
  6. ALBUTEROL [SALBUTAMOL] [Concomitant]
     Active Substance: ALBUTEROL
  7. ATORVASTATIN [Concomitant]
     Active Substance: ATORVASTATIN
  8. METOPROLOL. [Concomitant]
     Active Substance: METOPROLOL
  9. LIDOCAINE. [Concomitant]
     Active Substance: LIDOCAINE
  10. SODIUM CHLORIDE. [Concomitant]
     Active Substance: SODIUM CHLORIDE
  11. OPSUMIT [Suspect]
     Active Substance: MACITENTAN
     Indication: PULMONARY ARTERIAL HYPERTENSION
     Dosage: 10 MG, QD
     Route: 048
     Dates: start: 20140318
  12. OXYGEN. [Concomitant]
     Active Substance: OXYGEN
  13. CITALOPRAM [Concomitant]
     Active Substance: CITALOPRAM HYDROBROMIDE

REACTIONS (49)
  - Flank pain [Unknown]
  - Red blood cell count increased [Unknown]
  - Haematocrit increased [Unknown]
  - Lymphocyte count decreased [Unknown]
  - Electrocardiogram T wave inversion [Unknown]
  - Product dose omission [Unknown]
  - Dyspnoea exertional [Unknown]
  - Stress urinary incontinence [Not Recovered/Not Resolved]
  - Chronic obstructive pulmonary disease [Unknown]
  - PO2 increased [Unknown]
  - International normalised ratio increased [Unknown]
  - Blood urea increased [Unknown]
  - Visual impairment [Unknown]
  - Cardiomegaly [Unknown]
  - Mean cell haemoglobin concentration decreased [Unknown]
  - Blood glucose increased [Unknown]
  - Blood lactate dehydrogenase increased [Unknown]
  - Dyspnoea [Unknown]
  - Micturition urgency [Not Recovered/Not Resolved]
  - Back pain [Unknown]
  - Neutrophil count increased [Unknown]
  - Monocyte count increased [Unknown]
  - C-reactive protein increased [Unknown]
  - Haemoptysis [Unknown]
  - Pleural effusion [Unknown]
  - Blood lactic acid increased [Unknown]
  - White blood cell disorder [Unknown]
  - Blood urea nitrogen/creatinine ratio increased [Unknown]
  - Carbon dioxide abnormal [Unknown]
  - Memory impairment [Unknown]
  - Sepsis [Unknown]
  - Pulmonary hypertension [Unknown]
  - Red cell distribution width increased [Unknown]
  - Platelet count decreased [Unknown]
  - Prothrombin time prolonged [Unknown]
  - Blood bilirubin increased [Unknown]
  - Cough [Unknown]
  - Sleep apnoea syndrome [Unknown]
  - Troponin I increased [Unknown]
  - Neutrophil count decreased [Unknown]
  - Eosinophil count decreased [Unknown]
  - Red blood cell sedimentation rate increased [Unknown]
  - Serum ferritin increased [Unknown]
  - Respiratory failure [Unknown]
  - Lymphadenopathy mediastinal [Unknown]
  - Dementia Alzheimer^s type [Unknown]
  - Hypertension [Unknown]
  - PCO2 decreased [Unknown]
  - Nasopharyngitis [Unknown]

NARRATIVE: CASE EVENT DATE: 20200521
